FAERS Safety Report 20813854 (Version 2)
Quarter: 2022Q3

REPORT INFORMATION
  Report Type: Report from Study
  Country: FR (occurrence: FR)
  Receive Date: 20220511
  Receipt Date: 20220907
  Transmission Date: 20221027
  Serious: Yes (Hospitalization, Other)
  Sender: FDA-Public Use
  Company Number: FR-SERVIER-S22004573

PATIENT

DRUGS (13)
  1. PEGASPARGASE [Suspect]
     Active Substance: PEGASPARGASE
     Indication: Acute lymphocytic leukaemia
     Dosage: 1975 IU, D8
     Route: 042
     Dates: start: 20220127, end: 20220127
  2. PEGASPARGASE [Suspect]
     Active Substance: PEGASPARGASE
     Dosage: 1950 IU, D36, D64
     Route: 042
     Dates: start: 20220324
  3. DEXAMETHASONE [Suspect]
     Active Substance: DEXAMETHASONE
     Indication: Acute lymphocytic leukaemia
     Dosage: 2 MG, D1-D5
     Route: 048
     Dates: start: 20220120, end: 20220124
  4. DEXAMETHASONE [Suspect]
     Active Substance: DEXAMETHASONE
     Dosage: 5.1 MG, D29 TO D34
     Route: 048
     Dates: start: 20220217, end: 20220221
  5. VINCRISTINE [Suspect]
     Active Substance: VINCRISTINE
     Indication: Acute lymphocytic leukaemia
     Dosage: 1.2 MG, D1, D8
     Route: 042
     Dates: start: 20220120, end: 20220128
  6. VINCRISTINE [Suspect]
     Active Substance: VINCRISTINE
     Dosage: 1.2 MG, D64
     Route: 042
     Dates: start: 20220324, end: 20220324
  7. MERCAPTOPURINE [Suspect]
     Active Substance: MERCAPTOPURINE
     Indication: Acute lymphocytic leukaemia
     Dosage: 50 MG, D1-D21
     Route: 048
     Dates: start: 20220120
  8. METHOTREXATE [Suspect]
     Active Substance: METHOTREXATE
     Indication: Acute lymphocytic leukaemia
     Dosage: 12 MG, D2
     Route: 037
     Dates: start: 20220121, end: 20220121
  9. METHOTREXATE [Suspect]
     Active Substance: METHOTREXATE
     Dosage: 20 MG, EVERY 1 WEEK
     Route: 048
     Dates: start: 20220203
  10. METHOTREXATE [Suspect]
     Active Substance: METHOTREXATE
     Dosage: 12 MG, D58
     Route: 037
     Dates: start: 20220318, end: 20220318
  11. METHOTREXATE [Suspect]
     Active Substance: METHOTREXATE
     Dosage: 3 MG,
     Route: 048
     Dates: start: 20220310, end: 20220310
  12. THIOGUANINE [Suspect]
     Active Substance: THIOGUANINE
     Indication: Acute lymphocytic leukaemia
     Dosage: 50 MG, D29 TO D49
     Route: 048
     Dates: start: 20220217, end: 20220310
  13. LOVENOX [Suspect]
     Active Substance: ENOXAPARIN SODIUM
     Indication: Anticoagulant therapy
     Dosage: UNK
     Route: 065
     Dates: start: 20220408

REACTIONS (2)
  - Gastric ulcer [Recovering/Resolving]
  - Hyperbilirubinaemia [Recovered/Resolved]

NARRATIVE: CASE EVENT DATE: 20220207
